FAERS Safety Report 25284379 (Version 1)
Quarter: 2025Q2

REPORT INFORMATION
  Report Type: Spontaneous
  Country: US (occurrence: None)
  Receive Date: 20250508
  Receipt Date: 20250508
  Transmission Date: 20250717
  Serious: Yes (Death)
  Sender: FDA-CTU
  Company Number: None

PATIENT
  Age: 94 Year
  Sex: Female

DRUGS (10)
  1. COLLAGENASE SANTYL [Suspect]
     Active Substance: COLLAGENASE CLOSTRIDIUM HISTOLYTICUM
     Indication: Wound
     Dates: start: 20250123
  2. Santyl 250U/GM Ointment [Concomitant]
     Dates: start: 20250123, end: 20250204
  3. Lorazepam 1mg Tablets [Concomitant]
  4. ELIQUIS [Concomitant]
     Active Substance: APIXABAN
  5. ATORVASTATIN CALCIUM [Concomitant]
     Active Substance: ATORVASTATIN CALCIUM
  6. Amoxicillin 500mg Tabs [Concomitant]
     Dates: start: 20250318, end: 20250418
  7. Cefuroxime 500mg Tabs [Concomitant]
     Dates: start: 20250415, end: 20250421
  8. Metoprolol ER Succinate 50mg Tabs [Concomitant]
  9. NITROFURANTOIN MONOHYDRATE MACROCRYSTALS [Concomitant]
     Active Substance: NITROFURANTOIN\NITROFURANTOIN MONOHYDRATE
     Dates: start: 20250416, end: 20250422
  10. Quetiapine 50mg Tabs [Concomitant]

REACTIONS (1)
  - Death [None]
